FAERS Safety Report 7745299-9 (Version None)
Quarter: 2011Q3

REPORT INFORMATION
  Report Type: 
  Country: None (occurrence: None)
  Receive Date: 20110819
  Receipt Date: 20110516
  Transmission Date: 20111222
  Serious: No
  Sender: FDA-Public Use
  Company Number: 015278

PATIENT
  Sex: Male
  Weight: 113.4 kg

DRUGS (7)
  1. DEPAKOTE [Concomitant]
  2. AMBIEN [Concomitant]
  3. DILANTIN [Concomitant]
  4. ATIVAN [Concomitant]
  5. LACOSAMIDE [Suspect]
     Indication: EPILEPSY
     Dosage: (100 MG BID ORAL) ; (150 MG BID ORAL) ; (200 MG BID ORAL)
     Route: 048
     Dates: start: 20100314, end: 20100625
  6. LACOSAMIDE [Suspect]
     Indication: EPILEPSY
     Dosage: (100 MG BID ORAL) ; (150 MG BID ORAL) ; (200 MG BID ORAL)
     Route: 048
     Dates: start: 20100625
  7. TEGRETOL [Concomitant]

REACTIONS (9)
  - TREMOR [None]
  - LETHARGY [None]
  - COORDINATION ABNORMAL [None]
  - CHROMATURIA [None]
  - URINE ODOUR ABNORMAL [None]
  - CONVULSION [None]
  - URINE OUTPUT INCREASED [None]
  - RASH [None]
  - PRURITUS [None]
